FAERS Safety Report 21351811 (Version 1)
Quarter: 2022Q3

REPORT INFORMATION
  Report Type: Report from Study
  Country: TR (occurrence: TR)
  Receive Date: 20220919
  Receipt Date: 20220919
  Transmission Date: 20221027
  Serious: Yes (Other)
  Sender: FDA-Public Use
  Company Number: TR-SUN PHARMACEUTICAL INDUSTRIES LTD-2022R1-355168

PATIENT

DRUGS (1)
  1. AMITRIPTYLINE [Suspect]
     Active Substance: AMITRIPTYLINE
     Indication: Product used for unknown indication
     Dosage: MORE THAN 50 MG/KG
     Route: 065

REACTIONS (4)
  - Toxicity to various agents [Unknown]
  - Respiratory failure [Unknown]
  - Accidental overdose [Unknown]
  - Hypotension [Unknown]
